FAERS Safety Report 4753765-3 (Version None)
Quarter: 2005Q3

REPORT INFORMATION
  Report Type: 
  Country: None (occurrence: None)
  Receive Date: 20050818
  Receipt Date: 20050810
  Transmission Date: 20060218
  Serious: Yes (Other)
  Sender: FDA-Public Use
  Company Number: 200509406

PATIENT

DRUGS (2)
  1. HUMATE-P [Suspect]
     Dosage: PL
     Route: 064
  2. CHOLESTYRAMINE [Suspect]

REACTIONS (2)
  - DRUG EXPOSURE DURING PREGNANCY [None]
  - THROMBOCYTOPENIA NEONATAL [None]
